FAERS Safety Report 5551201-0 (Version None)
Quarter: 2007Q4

REPORT INFORMATION
  Report Type: 
  Country: None (occurrence: None)
  Receive Date: 20071212
  Receipt Date: 20071206
  Transmission Date: 20080405
  Serious: Yes (Hospitalization)
  Sender: FDA-Public Use
  Company Number: DE-WYE-G00735307

PATIENT
  Age: 1 Year
  Sex: Female
  Weight: 6 kg

DRUGS (1)
  1. VENLAFAXINE HCL [Suspect]
     Dosage: 2 CAPSULES (OVERDOSE AMOUNT 150 MG)
     Route: 048
     Dates: start: 20071205, end: 20071205

REACTIONS (2)
  - ACCIDENTAL DRUG INTAKE BY CHILD [None]
  - ACCIDENTAL OVERDOSE [None]
